FAERS Safety Report 4922297-1 (Version None)
Quarter: 2006Q1

REPORT INFORMATION
  Report Type: 
  Country: None (occurrence: None)
  Receive Date: 20060221
  Receipt Date: 20060206
  Transmission Date: 20060701
  Serious: Yes (Hospitalization)
  Sender: FDA-Public Use
  Company Number: 2006019231

PATIENT
  Sex: 0

DRUGS (2)
  1. LIPITOR [Suspect]
     Indication: ILL-DEFINED DISORDER
     Dosage: ORAL
     Route: 048
  2. PLAVIX [Suspect]
     Indication: ILL-DEFINED DISORDER

REACTIONS (3)
  - DRUG INTERACTION [None]
  - MYALGIA [None]
  - RASH [None]
